FAERS Safety Report 14407544 (Version 1)
Quarter: 2018Q1

REPORT INFORMATION
  Report Type: Spontaneous
  Country: US (occurrence: US)
  Receive Date: 20180116
  Receipt Date: 20180116
  Transmission Date: 20180509
  Serious: Yes (Hospitalization, Disabling, Other)
  Sender: FDA-Public Use
  Company Number: None

PATIENT
  Age: 68 Year
  Sex: Female
  Weight: 111.58 kg

DRUGS (14)
  1. BISACODYL. [Concomitant]
     Active Substance: BISACODYL
  2. DOCUSATE [Concomitant]
     Active Substance: DOCUSATE
  3. METFORMIN [Concomitant]
     Active Substance: METFORMIN HYDROCHLORIDE
  4. HUMALIN FLEX PEN [Concomitant]
  5. LISINOPRIL. [Concomitant]
     Active Substance: LISINOPRIL
  6. LEVOTHYROXINE. [Concomitant]
     Active Substance: LEVOTHYROXINE
  7. RISPERIDONE. [Concomitant]
     Active Substance: RISPERIDONE
  8. ABILIFY [Suspect]
     Active Substance: ARIPIPRAZOLE
     Dosage: BEDTIME PILL-MOUTH
     Route: 048
     Dates: start: 20170920, end: 201712
  9. BETA CAROTENE [Concomitant]
  10. LANTUS SOLO STAR INSULIN PEN [Concomitant]
  11. VITAMIN C [Concomitant]
     Active Substance: ASCORBIC ACID
  12. OMEPRAZOLE. [Concomitant]
     Active Substance: OMEPRAZOLE
  13. BYSTOLIC [Concomitant]
     Active Substance: NEBIVOLOL HYDROCHLORIDE
  14. ATORVASTATIN [Concomitant]
     Active Substance: ATORVASTATIN

REACTIONS (3)
  - Headache [None]
  - Palpitations [None]
  - Hallucination [None]
